FAERS Safety Report 19452272 (Version 1)
Quarter: 2021Q2

REPORT INFORMATION
  Report Type: Spontaneous
  Country: US (occurrence: US)
  Receive Date: 20210623
  Receipt Date: 20210623
  Transmission Date: 20210717
  Serious: Yes (Hospitalization, Other)
  Sender: FDA-Public Use
  Company Number: None

PATIENT
  Age: 25 Year
  Sex: Male
  Weight: 79.11 kg

DRUGS (1)
  1. CLOZAPINE. [Suspect]
     Active Substance: CLOZAPINE
     Indication: SCHIZOPHRENIA
     Dates: end: 20210504

REACTIONS (4)
  - Myocarditis [None]
  - Pericarditis [None]
  - Nausea [None]
  - C-reactive protein increased [None]

NARRATIVE: CASE EVENT DATE: 20210503
